FAERS Safety Report 9654293 (Version 1)
Quarter: 2013Q4

REPORT INFORMATION
  Report Type: Spontaneous
  Country: FR (occurrence: FR)
  Receive Date: 20131029
  Receipt Date: 20131029
  Transmission Date: 20140711
  Serious: Yes (Other)
  Sender: FDA-Public Use
  Company Number: FR-ROCHE-1295550

PATIENT
  Age: 44 Year
  Sex: Female

DRUGS (8)
  1. HERCEPTIN [Suspect]
     Indication: BREAST CANCER
     Dosage: 1 COURSE
     Route: 042
     Dates: start: 20130627
  2. HERCEPTIN [Suspect]
     Route: 042
     Dates: start: 20130912
  3. DOCETAXEL [Suspect]
     Indication: BREAST CANCER
     Dosage: 1 COURSE
     Route: 042
     Dates: start: 20130627
  4. PACLITAXEL [Concomitant]
  5. ZOPHREN [Concomitant]
  6. CORTANCYL [Concomitant]
  7. PARACETAMOL [Concomitant]
  8. RANITIDINE HYDROCHLORIDE [Concomitant]

REACTIONS (4)
  - Palmar-plantar erythrodysaesthesia syndrome [Recovered/Resolved with Sequelae]
  - Dyspepsia [Recovered/Resolved]
  - Mucosal inflammation [Recovered/Resolved]
  - Myalgia [Recovered/Resolved]
